FAERS Safety Report 6245675-X (Version None)
Quarter: 2009Q2

REPORT INFORMATION
  Report Type: 
  Country: None (occurrence: None)
  Receive Date: 20090625
  Receipt Date: 20090615
  Transmission Date: 20091009
  Serious: Yes (Other)
  Sender: FDA-Public Use
  Company Number: IT-GENENTECH-285317

PATIENT

DRUGS (5)
  1. TRASTUZUMAB [Suspect]
     Indication: BREAST CANCER METASTATIC
     Dosage: 4 MG/KG, UNK
     Route: 065
  2. TRASTUZUMAB [Suspect]
     Dosage: 2 MG/KG, 1/WEEK
     Route: 065
  3. MYOCET [Suspect]
     Indication: BREAST CANCER METASTATIC
     Dosage: 50 MG/M2, Q21D
     Route: 065
  4. MYOCET [Suspect]
     Dosage: UNK
  5. DOCETAXEL [Suspect]
     Indication: BREAST CANCER METASTATIC
     Dosage: 30 MG/M2, Q21D
     Route: 065

REACTIONS (4)
  - ALOPECIA [None]
  - DISEASE PROGRESSION [None]
  - GRANULOCYTOPENIA [None]
  - LEUKOPENIA [None]
